FAERS Safety Report 12360066 (Version 1)
Quarter: 2016Q2

REPORT INFORMATION
  Report Type: Report from Study
  Country: JP (occurrence: JP)
  Receive Date: 20160512
  Receipt Date: 20160512
  Transmission Date: 20160815
  Serious: Yes (Other)
  Sender: FDA-Public Use
  Company Number: JP-TEVA-658511ISR

PATIENT
  Age: 31 Year
  Sex: Male

DRUGS (4)
  1. TOCILIZUMAB [Suspect]
     Active Substance: TOCILIZUMAB
     Indication: STILL^S DISEASE ADULT ONSET
     Dosage: 8 MG/KG/BIWEEKLY
     Route: 065
  2. METHYLPREDNISOLONE. [Suspect]
     Active Substance: METHYLPREDNISOLONE
     Dosage: 500 MILLIGRAM DAILY; ONE PULSE OF 500 MG/DAY
     Route: 065
  3. PREDNISOLONE. [Suspect]
     Active Substance: PREDNISOLONE
     Indication: STILL^S DISEASE ADULT ONSET
     Dosage: 5 MG
     Route: 048
  4. METHYLPREDNISOLONE. [Suspect]
     Active Substance: METHYLPREDNISOLONE
     Indication: STILL^S DISEASE ADULT ONSET
     Dosage: 1000 MILLIGRAM DAILY; TWO PULSES OF 1000 MG/DAY
     Route: 065

REACTIONS (2)
  - Histiocytosis haematophagic [Recovered/Resolved]
  - Cytomegalovirus infection [Unknown]
